FAERS Safety Report 9066583 (Version 1)
Quarter: 2013Q1

REPORT INFORMATION
  Report Type: Spontaneous
  Country: GB (occurrence: GB)
  Receive Date: 20130214
  Receipt Date: 20130214
  Transmission Date: 20140127
  Serious: Yes (Disabling)
  Sender: FDA-Public Use
  Company Number: GB-GLAXOSMITHKLINE-B0862594A

PATIENT
  Age: 57 Year
  Sex: Male

DRUGS (3)
  1. NIQUITIN CQ 4MG LOZENGE [Suspect]
     Indication: EX-TOBACCO USER
     Dosage: 21MG SINGLE DOSE
     Route: 062
     Dates: start: 20130115, end: 20130115
  2. OMEPRAZOLE [Concomitant]
     Dosage: 20MG PER DAY
  3. NICORETTE INHALATOR [Concomitant]
     Indication: EX-TOBACCO USER

REACTIONS (3)
  - Nausea [Recovering/Resolving]
  - Vomiting [Recovering/Resolving]
  - Malaise [Recovering/Resolving]
